FAERS Safety Report 25497156 (Version 1)
Quarter: 2025Q3

REPORT INFORMATION
  Report Type: Report from Study
  Country: US (occurrence: US)
  Receive Date: 20250701
  Receipt Date: 20250701
  Transmission Date: 20251021
  Serious: Yes (Hospitalization, Other)
  Sender: ACADIA PHARMACEUTICALS
  Company Number: US-ACADIA PHARMACEUTICALS INC.-ACA-2025-PIM-007658

PATIENT
  Age: 72 Year
  Sex: Male

DRUGS (17)
  1. NUPLAZID [Suspect]
     Active Substance: PIMAVANSERIN TARTRATE
     Indication: Parkinson^s disease
     Dosage: 34 MILLIGRAM, QD
     Route: 048
     Dates: start: 20250425
  2. CARVEDILOL [Concomitant]
     Active Substance: CARVEDILOL
  3. HUMALOG [Concomitant]
     Active Substance: INSULIN LISPRO
  4. ENTACAPONE [Concomitant]
     Active Substance: ENTACAPONE
  5. CARBIDOPA\LEVODOPA [Concomitant]
     Active Substance: CARBIDOPA\LEVODOPA
  6. BUMETANIDE [Concomitant]
     Active Substance: BUMETANIDE
  7. BENADRYL [Concomitant]
     Active Substance: DIPHENHYDRAMINE HYDROCHLORIDE
  8. MELATONIN [Concomitant]
     Active Substance: MELATONIN
  9. FISH OIL [Concomitant]
     Active Substance: FISH OIL
  10. QUETIAPINE FUMARATE [Concomitant]
     Active Substance: QUETIAPINE FUMARATE
  11. SODIUM BICARBONATE [Concomitant]
     Active Substance: SODIUM BICARBONATE
  12. ONDANSETRON [Concomitant]
     Active Substance: ONDANSETRON
  13. LORATADINE [Concomitant]
     Active Substance: LORATADINE
  14. OLOPATADINE [Concomitant]
     Active Substance: OLOPATADINE
  15. PEG 3350 [Concomitant]
     Active Substance: POLYETHYLENE GLYCOL 3350
  16. LETROZOLE [Concomitant]
     Active Substance: LETROZOLE
  17. TAMSULOSIN [Concomitant]
     Active Substance: TAMSULOSIN

REACTIONS (1)
  - Cardiac failure congestive [Unknown]

NARRATIVE: CASE EVENT DATE: 20250614
